FAERS Safety Report 7771699-7 (Version None)
Quarter: 2011Q3

REPORT INFORMATION
  Report Type: 
  Country: None (occurrence: None)
  Receive Date: 20110922
  Receipt Date: 20110222
  Transmission Date: 20111222
  Serious: No
  Sender: FDA-Public Use
  Company Number: US-ASTRAZENECA-2011SE09980

PATIENT
  Age: 55 Year
  Sex: Female
  Weight: 53.5 kg

DRUGS (5)
  1. KLONOPIN [Concomitant]
  2. SEROQUEL [Suspect]
     Indication: SUICIDAL BEHAVIOUR
     Dosage: 200MG, TWO TABLETS AT BEDTIME
     Route: 048
     Dates: end: 20110201
  3. SEROQUEL [Suspect]
     Dosage: 200MG, TWO TABLETS AT BEDTIME
     Route: 048
     Dates: end: 20110201
  4. SEROQUEL [Suspect]
     Indication: BIPOLAR I DISORDER
     Dosage: 200MG, TWO TABLETS AT BEDTIME
     Route: 048
     Dates: end: 20110201
  5. CITALOPRAM HYDROBROMIDE [Concomitant]

REACTIONS (9)
  - HEADACHE [None]
  - THERAPEUTIC RESPONSE UNEXPECTED [None]
  - NAUSEA [None]
  - CHILLS [None]
  - DRUG DOSE OMISSION [None]
  - DIARRHOEA [None]
  - INSOMNIA [None]
  - VOMITING [None]
  - NO ADVERSE EVENT [None]
